FAERS Safety Report 4609799-2 (Version None)
Quarter: 2005Q1

REPORT INFORMATION
  Report Type: 
  Country: None (occurrence: None)
  Receive Date: 20050314
  Receipt Date: 20050228
  Transmission Date: 20050727
  Serious: Yes (Hospitalization)
  Sender: FDA-Public Use
  Company Number: HQWYE155922SEP04

PATIENT
  Age: 78 Year
  Sex: Female

DRUGS (12)
  1. EUPANTOL (PANTOPRAZOLE, TABLET, DELAYED RELEASE) [Suspect]
     Indication: MELAENA
     Dosage: 40 MG 1X PER 1 DAY ORAL
     Route: 048
     Dates: start: 20040714
  2. ATARAX [Suspect]
     Dosage: 25 MG 1X PER 1 DAY ORAL
     Route: 048
     Dates: start: 20040808
  3. AUGMENTIN [Suspect]
     Indication: PNEUMONIA
     Dosage: 3 G 1X PER 1 DAY ORAL
     Route: 048
     Dates: start: 20040716, end: 20040725
  4. ACETAMINOPHEN [Suspect]
     Indication: FEMUR FRACTURE
     Dosage: 3 G 1X PER 1 DAY ORAL
     Route: 048
     Dates: start: 20040807
  5. EQUANIL [Suspect]
     Indication: DEMENTIA
     Dosage: 40 MG 1X PER 1 DAY ORAL
     Route: 048
     Dates: start: 20040803, end: 20040820
  6. KETOPROFEN [Suspect]
     Indication: FEMUR FRACTURE
     Dosage: 50 MG 1X PER 1 DAY ORAL
     Route: 048
     Dates: start: 20040808, end: 20040817
  7. FOLIC ACID [Concomitant]
  8. VITAMIN B 1-6-12 (CYANOCOBALAMIN/PYRIDOXINE HYDROCHLORIDE/THIAMINE HYD [Concomitant]
  9. TRANXENE [Concomitant]
  10. ANEXATE (FLUMAZENIL) [Concomitant]
  11. TERCIAN (CYAMEMAZINE) [Concomitant]
  12. LOVENOX [Concomitant]

REACTIONS (5)
  - FALL [None]
  - FEMUR FRACTURE [None]
  - HEPATITIS CHOLESTATIC [None]
  - LUNG DISORDER [None]
  - PYREXIA [None]
